FAERS Safety Report 5278989-0 (Version None)
Quarter: 2007Q1

REPORT INFORMATION
  Report Type: 
  Country: None (occurrence: None)
  Receive Date: 20070328
  Receipt Date: 20061010
  Transmission Date: 20070707
  Serious: No
  Sender: FDA-Public Use
  Company Number: US-AMGEN-KDL196376

PATIENT
  Sex: Female

DRUGS (7)
  1. NEULASTA [Suspect]
     Indication: CHEMOTHERAPY
     Route: 065
     Dates: start: 20060401, end: 20060725
  2. DICLOFENAC SODIUM [Concomitant]
     Route: 065
  3. LORAZEPAM [Concomitant]
     Route: 065
  4. ACYCLOVIR [Concomitant]
     Route: 065
  5. PREDNISONE [Concomitant]
     Route: 065
  6. FOSAMAX [Concomitant]
     Route: 065
  7. EFFEXOR [Concomitant]
     Route: 065

REACTIONS (6)
  - ARTHRALGIA [None]
  - PAIN [None]
  - PALPITATIONS [None]
  - STAPHYLOCOCCAL INFECTION [None]
  - VISION BLURRED [None]
  - VISUAL DISTURBANCE [None]
